FAERS Safety Report 14590054 (Version 4)
Quarter: 2018Q3

REPORT INFORMATION
  Report Type: Spontaneous
  Country: JP (occurrence: JP)
  Receive Date: 20180302
  Receipt Date: 20180814
  Transmission Date: 20181010
  Serious: Yes (Death, Other)
  Sender: FDA-Public Use
  Company Number: JP-009507513-1802JPN012437

PATIENT
  Age: 73 Year
  Sex: Male

DRUGS (12)
  1. L?CARBOCYSTEINE [Concomitant]
     Active Substance: CARBOCYSTEINE
     Dosage: UNK, UNKNOWN
  2. OPDIVO [Suspect]
     Active Substance: NIVOLUMAB
     Dosage: 146 MG, UNK
     Route: 041
     Dates: start: 20160719, end: 20160719
  3. BIO?THREE [Concomitant]
     Active Substance: HERBALS
     Dosage: UNK, UNKNOWN
  4. OPDIVO [Suspect]
     Active Substance: NIVOLUMAB
     Dosage: 146 MG, UNK
     Route: 041
     Dates: start: 20160524, end: 20160524
  5. OPDIVO [Suspect]
     Active Substance: NIVOLUMAB
     Dosage: 146 MG, UNK
     Route: 041
     Dates: start: 20160621, end: 20160621
  6. OPDIVO [Suspect]
     Active Substance: NIVOLUMAB
     Dosage: 146 MG, UNK
     Route: 041
     Dates: start: 20160705, end: 20160705
  7. FLAVERIC [Concomitant]
     Active Substance: BENPROPERINE PHOSPHATE
     Dosage: UNK, UNKNOWN
  8. AMBROXOL HYDROCHLORIDE [Concomitant]
     Active Substance: AMBROXOL HYDROCHLORIDE
     Dosage: UNK, UNKNOWN
  9. GLACTIV [Suspect]
     Active Substance: SITAGLIPTIN
     Dosage: UNK
     Route: 048
  10. OPDIVO [Suspect]
     Active Substance: NIVOLUMAB
     Dosage: 146 MG, UNK
     Route: 041
     Dates: start: 20160607, end: 20160607
  11. FLUOCINONIDE. [Concomitant]
     Active Substance: FLUOCINONIDE
     Dosage: UNK, UNKNOWN
  12. OPDIVO [Suspect]
     Active Substance: NIVOLUMAB
     Indication: NON-SMALL CELL LUNG CANCER RECURRENT
     Dosage: 146 MG, UNK
     Route: 041
     Dates: start: 20160426, end: 20160426

REACTIONS (2)
  - Diabetic nephropathy [Not Recovered/Not Resolved]
  - Death [Fatal]

NARRATIVE: CASE EVENT DATE: 20160802
